FAERS Safety Report 25157433 (Version 1)
Quarter: 2025Q2

REPORT INFORMATION
  Report Type: Report from Study
  Country: US (occurrence: US)
  Receive Date: 20250403
  Receipt Date: 20250403
  Transmission Date: 20250716
  Serious: No
  Sender: ASTELLAS
  Company Number: US-ASTELLAS-2024-AER-004105

PATIENT
  Sex: Female

DRUGS (2)
  1. FEZOLINETANT [Suspect]
     Active Substance: FEZOLINETANT
     Indication: Hot flush
     Route: 065
     Dates: start: 20231115, end: 202412
  2. FEZOLINETANT [Suspect]
     Active Substance: FEZOLINETANT
     Indication: Night sweats

REACTIONS (3)
  - Hepatic enzyme increased [Unknown]
  - Loss of therapeutic response [Unknown]
  - Off label use [Unknown]
